FAERS Safety Report 16589584 (Version 1)
Quarter: 2019Q3

REPORT INFORMATION
  Report Type: Spontaneous
  Country: DE (occurrence: DE)
  Receive Date: 20190718
  Receipt Date: 20190718
  Transmission Date: 20191004
  Serious: Yes (Hospitalization)
  Sender: FDA-Public Use
  Company Number: DE-ACCORD-139009

PATIENT
  Age: 77 Year
  Sex: Male
  Weight: 68 kg

DRUGS (9)
  1. ALLOPURINOL. [Concomitant]
     Active Substance: ALLOPURINOL
     Dosage: 150 MG, 1-0-0-0, TABLET
     Route: 048
  2. SIMVASTATIN. [Concomitant]
     Active Substance: SIMVASTATIN
     Dosage: 20 MG, 0-0-1-0, TABLET
     Route: 048
  3. AMLODIPINE [Concomitant]
     Active Substance: AMLODIPINE BESYLATE
     Dosage: 5 MG, 1-1-0-0, TABLET
     Route: 048
  4. KREON 25000 [Concomitant]
     Active Substance: PANCRELIPASE
     Dosage: 25000 IU, 2-3-2-0, CAPSULE
     Route: 048
  5. ACETYLSALICYLIC ACID [Concomitant]
     Active Substance: ASPIRIN
     Dosage: 100 MG, 1-0-0-0, TABLET
     Route: 048
  6. CANDESARTAN/HYDROCHLOROTHIAZIDE [Concomitant]
     Dosage: 16 MG, 1-0-0-0, TABLET
     Route: 048
  7. METOHEXAL 200MG RETARD [Concomitant]
     Dosage: 200 MG, 1-0-0-0, SUSTAINED-RELEASE TABLETS
     Route: 048
  8. APIXABAN [Concomitant]
     Active Substance: APIXABAN
     Dosage: 5 MG, 1-0-1-0, TABLET
     Route: 048
  9. GEMCITABINE/GEMCITABINE HYDROCHLORIDE [Suspect]
     Active Substance: GEMCITABINE\GEMCITABINE HYDROCHLORIDE
     Indication: PRODUCT USED FOR UNKNOWN INDICATION
     Dosage: NK MG / M2, ACCORDING TO SCHEME, MOST RECENTLY ON 23.02.2018,
     Route: 042

REACTIONS (3)
  - Pyrexia [Unknown]
  - Dyspnoea [Unknown]
  - General physical health deterioration [Unknown]
